FAERS Safety Report 11680044 (Version 2)
Quarter: 2015Q4

REPORT INFORMATION
  Report Type: Spontaneous
  Country: US (occurrence: US)
  Receive Date: 20151027
  Receipt Date: 20151104
  Transmission Date: 20160304
  Serious: No
  Sender: FDA-Public Use
  Company Number: US-ELI_LILLY_AND_COMPANY-US201008006633

PATIENT
  Sex: Female

DRUGS (5)
  1. THYROID THERAPY [Concomitant]
     Active Substance: UNSPECIFIED INGREDIENT
     Indication: THYROID DISORDER
  2. ANTIDEPRESSANTS [Concomitant]
     Active Substance: UNSPECIFIED INGREDIENT
  3. ZYPREXA [Concomitant]
     Active Substance: OLANZAPINE
  4. ANTIACID [Concomitant]
     Indication: GASTROOESOPHAGEAL REFLUX DISEASE
  5. FORTEO [Suspect]
     Active Substance: TERIPARATIDE
     Indication: OSTEOPOROSIS
     Dosage: 20 UG, DAILY (1/D)
     Dates: start: 20100111

REACTIONS (6)
  - Pain in extremity [Unknown]
  - Injection site bruising [Recovered/Resolved]
  - Abdominal pain upper [Unknown]
  - Injection site pain [Not Recovered/Not Resolved]
  - Hyperaesthesia [Unknown]
  - Abdominal discomfort [Unknown]
